FAERS Safety Report 7546797-3 (Version None)
Quarter: 2011Q2

REPORT INFORMATION
  Report Type: 
  Country: None (occurrence: None)
  Receive Date: 20110614
  Receipt Date: 20110531
  Transmission Date: 20111010
  Serious: Yes (Other)
  Sender: FDA-Public Use
  Company Number: FR-JNJFOC-20110600967

PATIENT
  Age: 10 Year
  Sex: Female

DRUGS (6)
  1. PREDNISONE [Concomitant]
  2. REMICADE [Suspect]
     Indication: CROHN'S DISEASE
     Route: 042
  3. FOLIC ACID [Concomitant]
  4. REMICADE [Suspect]
     Indication: COLITIS
     Route: 042
  5. REMICADE [Suspect]
     Route: 042
     Dates: start: 20110501
  6. REMICADE [Suspect]
     Route: 042
     Dates: start: 20110501

REACTIONS (5)
  - VOMITING [None]
  - ANAPHYLACTIC SHOCK [None]
  - INFUSION RELATED REACTION [None]
  - ERYTHROSIS [None]
  - NAUSEA [None]
